FAERS Safety Report 14952205 (Version 1)
Quarter: 2018Q2

REPORT INFORMATION
  Report Type: Spontaneous
  Country: US (occurrence: US)
  Receive Date: 20180509
  Receipt Date: 20180509
  Transmission Date: 20180711
  Serious: Yes (Hospitalization)
  Sender: FDA-Public Use
  Company Number: None

PATIENT
  Age: 87 Year
  Sex: Male

DRUGS (1)
  1. YONDELIS [Suspect]
     Active Substance: TRABECTEDIN
     Indication: SOFT TISSUE SARCOMA
     Dosage: ?          OTHER FREQUENCY:EVERY 21 DAYS ;?
     Route: 017
     Dates: start: 20180418

REACTIONS (2)
  - Blood sodium decreased [None]
  - Epilepsy [None]

NARRATIVE: CASE EVENT DATE: 20180425
